FAERS Safety Report 14657552 (Version 2)
Quarter: 2018Q1

REPORT INFORMATION
  Report Type: Report from Study
  Country: AT (occurrence: AT)
  Receive Date: 20180320
  Receipt Date: 20180326
  Transmission Date: 20180509
  Serious: Yes (Hospitalization, Other)
  Sender: FDA-Public Use
  Company Number: AT-ROCHE-2088384

PATIENT
  Age: 46 Year
  Sex: Female
  Weight: 65 kg

DRUGS (21)
  1. CARBOPLATIN. [Suspect]
     Active Substance: CARBOPLATIN
     Indication: OVARIAN CANCER
     Dosage: AREA UNDER THE CURVE (AUC) OF 6MG/ML*MIN ON DAY 1 OF EACH 21-DAY CYCLE FOR A TOTAL OF 6 CYCLES?ON 26
     Route: 042
     Dates: start: 20180205
  2. EMEND [Concomitant]
     Active Substance: APREPITANT
     Route: 065
     Dates: start: 20180206, end: 20180207
  3. EMEND [Concomitant]
     Active Substance: APREPITANT
     Indication: NAUSEA
     Route: 065
     Dates: start: 20180226, end: 20180227
  4. MAGNOSOLV [Concomitant]
     Indication: CONSTIPATION
     Dosage: 6,1 G BTL
     Route: 065
  5. ATEZOLIZUMAB. [Suspect]
     Active Substance: ATEZOLIZUMAB
     Indication: OVARIAN CANCER
     Dosage: ON 26/FEB/2018, RECEIVED MOST RECENT DOSE OF BLINDED ATEZOLIZUMAB PRIOR TO EVENT.
     Route: 042
     Dates: start: 20180205
  6. DIBONDRIN [Concomitant]
     Active Substance: DIPHENHYDRAMINE HYDROCHLORIDE
     Route: 065
     Dates: start: 20180226, end: 20180226
  7. DEXABENE [Concomitant]
     Route: 042
     Dates: start: 20180226, end: 20180226
  8. DEXABENE [Concomitant]
     Route: 042
     Dates: start: 20180206, end: 20180206
  9. LOVENOX [Concomitant]
     Active Substance: ENOXAPARIN SODIUM
     Indication: EMBOLISM
     Route: 065
     Dates: start: 20180129, end: 20180131
  10. NOVALGIN (AUSTRIA) [Concomitant]
     Indication: PAIN
  11. RATIOGRASTIM [Concomitant]
     Active Substance: FILGRASTIM
     Indication: NEUTROPENIA
     Route: 065
     Dates: start: 20180307, end: 20180311
  12. BEVACIZUMAB. [Suspect]
     Active Substance: BEVACIZUMAB
     Indication: OVARIAN CANCER
     Dosage: ON 26/FEB/2018, SHE RECEIVED MOST RECENT DOSE (975 MG) OF BEVACIZUMAB PRIOR TO EVENT.
     Route: 042
     Dates: start: 20180226
  13. OLEOVIT D3 [Concomitant]
     Active Substance: CHOLECALCIFEROL
     Indication: VITAMIN D DEFICIENCY
  14. LIXIANA [Concomitant]
     Active Substance: EDOXABAN TOSYLATE
     Indication: PULMONARY EMBOLISM
     Route: 065
     Dates: start: 20180201
  15. ZOFRAN [Concomitant]
     Active Substance: ONDANSETRON HYDROCHLORIDE
     Route: 065
     Dates: start: 20180226, end: 20180226
  16. ZOFRAN [Concomitant]
     Active Substance: ONDANSETRON HYDROCHLORIDE
     Route: 065
     Dates: start: 20180206, end: 20180206
  17. DIBONDRIN [Concomitant]
     Active Substance: DIPHENHYDRAMINE HYDROCHLORIDE
     Route: 065
     Dates: start: 20180206, end: 20180206
  18. PANTOLOC [Concomitant]
     Active Substance: PANTOPRAZOLE SODIUM
     Indication: GASTRITIS
  19. XYLOCAINE [Concomitant]
     Active Substance: LIDOCAINE HYDROCHLORIDE
     Indication: PROPHYLAXIS
  20. PACLITAXEL. [Suspect]
     Active Substance: PACLITAXEL
     Indication: OVARIAN CANCER
     Dosage: ON 26/FEB/2018, SHE RECEIVED MOST RECENT DOSE OF PACLITAXEL 306.9 MG PRIOR TO EVENT.
     Route: 042
     Dates: start: 20180205
  21. TRITTICO [Concomitant]
     Active Substance: TRAZODONE HYDROCHLORIDE
     Indication: DEPRESSION

REACTIONS (2)
  - Dehydration [Recovered/Resolved]
  - Immune-mediated hepatitis [Recovered/Resolved]

NARRATIVE: CASE EVENT DATE: 20180226
